FAERS Safety Report 18617678 (Version 5)
Quarter: 2024Q1

REPORT INFORMATION
  Report Type: Report from Study
  Country: JP (occurrence: JP)
  Receive Date: 20201215
  Receipt Date: 20240330
  Transmission Date: 20240410
  Serious: Yes (Other)
  Sender: FDA-Public Use
  Company Number: JP-ABBVIE-20K-087-3528220-00

PATIENT
  Sex: Male
  Weight: 64 kg

DRUGS (11)
  1. CARBIDOPA\LEVODOPA [Suspect]
     Active Substance: CARBIDOPA\LEVODOPA
     Indication: Parkinson^s disease
     Dosage: MD: 0 ML, CD: 2.5 ML/HR ? 16 HRS, ED: 1.0 ML/UNIT ? 0
     Route: 050
     Dates: start: 20180518, end: 20180921
  2. CARBIDOPA\LEVODOPA [Suspect]
     Active Substance: CARBIDOPA\LEVODOPA
     Dosage: MD: 0 ML, CD: 2.2 ML/HR ?- 16 HRS, ED: 1.0 ML/UNIT ?- 0
     Route: 050
     Dates: start: 20181214, end: 20190308
  3. CARBIDOPA\LEVODOPA [Suspect]
     Active Substance: CARBIDOPA\LEVODOPA
     Route: 050
     Dates: start: 20171110, end: 20180518
  4. CARBIDOPA\LEVODOPA [Suspect]
     Active Substance: CARBIDOPA\LEVODOPA
     Dosage: MD: 0 ML, CD: 2.1 ML/HR ? 16 HRS, ED: 0 ML/UNIT ? 0
     Route: 050
     Dates: start: 20190308
  5. CARBIDOPA\LEVODOPA [Suspect]
     Active Substance: CARBIDOPA\LEVODOPA
     Dosage: MD: 0 ML, CD: 2.3 ML/HR ? 16 HRS, ED: 1.0 ML/UNIT ? 0
     Route: 050
     Dates: start: 20181102, end: 20181214
  6. CARBIDOPA\LEVODOPA [Suspect]
     Active Substance: CARBIDOPA\LEVODOPA
     Dosage: MD: 0 ML, CD: 2.4 ML/HR ? 16 HRS, ED: 1.0 ML/UNIT ? 0
     Route: 050
     Dates: start: 20180921, end: 20181102
  7. CARBIDOPA\LEVODOPA [Suspect]
     Active Substance: CARBIDOPA\LEVODOPA
     Route: 050
     Dates: start: 20170519, end: 20171110
  8. ROTIGOTINE [Concomitant]
     Active Substance: ROTIGOTINE
     Indication: Parkinson^s disease
     Dosage: 4.5 MILLIGRAM
     Route: 062
     Dates: start: 20170822, end: 20170822
  9. MAGNESIUM OXIDE [Concomitant]
     Active Substance: MAGNESIUM OXIDE
     Indication: Product used for unknown indication
     Route: 048
  10. BETAMETHASONE VALERATE\GENTAMICIN SULFATE [Concomitant]
     Active Substance: BETAMETHASONE VALERATE\GENTAMICIN SULFATE
     Indication: Prophylaxis
     Dosage: Q.S.
     Route: 061
  11. CARBIDOPA\LEVODOPA [Concomitant]
     Active Substance: CARBIDOPA\LEVODOPA
     Indication: Parkinson^s disease
     Route: 048
     Dates: start: 20171110

REACTIONS (10)
  - Pulmonary embolism [Unknown]
  - Therapeutic response shortened [Unknown]
  - Incorrect route of product administration [Unknown]
  - Gastroenteritis viral [Unknown]
  - Off label use [Unknown]
  - Device issue [Recovered/Resolved]
  - Drug ineffective [Recovered/Resolved]
  - Abdominal distension [Unknown]
  - Dyspepsia [Recovered/Resolved]
  - Drug ineffective [Unknown]

NARRATIVE: CASE EVENT DATE: 20170901
